FAERS Safety Report 4834362-8 (Version None)
Quarter: 2005Q4

REPORT INFORMATION
  Report Type: 
  Country: None (occurrence: None)
  Receive Date: 20051114
  Receipt Date: 20051031
  Transmission Date: 20060501
  Serious: Yes (Other)
  Sender: FDA-Public Use
  Company Number: 2005139301

PATIENT
  Age: 80 Year
  Sex: Male
  Weight: 90.7194 kg

DRUGS (10)
  1. DETROL LA [Suspect]
     Indication: POLLAKIURIA
     Dosage: 4 MG (4 MG, 1 IN 1 D), ORAL
     Route: 048
     Dates: start: 20040920
  2. VASOTEC [Concomitant]
  3. MULTIVITAMIN [Concomitant]
  4. VITAMIN E [Concomitant]
  5. ASPIRIN [Concomitant]
  6. ANALGESICS (ANALGESICS) [Concomitant]
  7. COLACE (DOCUSATE SODIUM) [Concomitant]
  8. IRON (IRON) [Concomitant]
  9. STOOL SOFTENER (DOCUSATE SODIUM) [Concomitant]
  10. ALL OTHER THERAPEUTIC PRODUCTS (ALL OTHER THERAPEUTIC PRODUCTS) [Concomitant]

REACTIONS (3)
  - DRUG INEFFECTIVE [None]
  - KNEE ARTHROPLASTY [None]
  - WEIGHT DECREASED [None]
